FAERS Safety Report 18238582 (Version 2)
Quarter: 2020Q3

REPORT INFORMATION
  Report Type: Report from Study
  Country: ES (occurrence: ES)
  Receive Date: 20200907
  Receipt Date: 20200911
  Transmission Date: 20201103
  Serious: Yes (Other)
  Sender: FDA-Public Use
  Company Number: ES-TEVA-2020-ES-1823617

PATIENT
  Age: 62 Year
  Sex: Male

DRUGS (4)
  1. OMEPRAZOL (2141A) [Concomitant]
     Active Substance: OMEPRAZOLE
     Dates: start: 20200327
  2. HIDROXICLOROQUINA (2143A) [Suspect]
     Active Substance: HYDROXYCHLOROQUINE
     Indication: COVID-19
     Dosage: 200MG
     Dates: start: 20200327, end: 20200401
  3. ENOXAPARINA (2482A) [Concomitant]
     Active Substance: ENOXAPARIN
     Route: 058
     Dates: start: 20200327
  4. AZITROMICINA (7019A) [Suspect]
     Active Substance: AZITHROMYCIN
     Indication: COVID-19
     Dosage: UNIT DOSE 500MG
     Dates: start: 20200327, end: 20200401

REACTIONS (1)
  - Hypertransaminasaemia [Recovered/Resolved]

NARRATIVE: CASE EVENT DATE: 20200327
